FAERS Safety Report 5307260-3 (Version None)
Quarter: 2007Q2

REPORT INFORMATION
  Report Type: 
  Country: None (occurrence: None)
  Receive Date: 20070425
  Receipt Date: 20070417
  Transmission Date: 20071010
  Serious: Yes (Hospitalization)
  Sender: FDA-Public Use
  Company Number: FR-GLAXOSMITHKLINE-B0466857A

PATIENT
  Age: 84 Year
  Sex: Female

DRUGS (4)
  1. REQUIP [Suspect]
     Dosage: 2MG PER DAY
     Route: 048
  2. PRETERAX [Suspect]
     Dosage: 1UNIT PER DAY
     Route: 048
     Dates: end: 20060722
  3. NEXIUM [Suspect]
     Dosage: 40MG PER DAY
     Route: 048
  4. SINEMET [Suspect]
     Dosage: 1TAB PER DAY
     Route: 048

REACTIONS (9)
  - ANOREXIA [None]
  - DEHYDRATION [None]
  - FEELING HOT [None]
  - GENERAL PHYSICAL HEALTH DETERIORATION [None]
  - HYPONATRAEMIA [None]
  - IMPAIRED SELF-CARE [None]
  - INSOMNIA [None]
  - MALNUTRITION [None]
  - NAUSEA [None]
